FAERS Safety Report 14034215 (Version 1)
Quarter: 2017Q4

REPORT INFORMATION
  Report Type: Spontaneous
  Country: US (occurrence: US)
  Receive Date: 20171003
  Receipt Date: 20171003
  Transmission Date: 20180321
  Serious: Yes (Other)
  Sender: FDA-Public Use
  Company Number: US-TEVA-748180USA

PATIENT
  Sex: Female

DRUGS (1)
  1. CLONAZEPAM. [Suspect]
     Active Substance: CLONAZEPAM
     Indication: ANXIETY
     Dosage: ONCE A DAY
     Route: 065

REACTIONS (6)
  - Memory impairment [Unknown]
  - Drug dependence [Unknown]
  - Malaise [Unknown]
  - Headache [Unknown]
  - Insomnia [Unknown]
  - Therapeutic response unexpected [Unknown]
